FAERS Safety Report 8206533-4 (Version None)
Quarter: 2012Q1

REPORT INFORMATION
  Report Type: 
  Country: None (occurrence: None)
  Receive Date: 20120313
  Receipt Date: 20100818
  Transmission Date: 20120608
  Serious: No
  Sender: FDA-Public Use
  Company Number: PHHY2010SG093629

PATIENT
  Sex: Male

DRUGS (10)
  1. TASIGNA [Suspect]
     Indication: CHRONIC MYELOID LEUKAEMIA
     Dosage: 800 MG, DAILY
     Route: 048
     Dates: start: 20100506, end: 20100818
  2. CIPROFLOXACIN [Concomitant]
     Dosage: UNK UKN, UNK
  3. FOLIC ACID [Concomitant]
     Dosage: UNK UKN, UNK
  4. TRAMADOL HCL [Concomitant]
     Dosage: UNK UKN, UNK
  5. SENNOSIDES A+B [Concomitant]
     Dosage: UNK UKN, UNK
  6. LACTULOSE [Concomitant]
     Dosage: UNK UKN, UNK
  7. FERROUS GLUCONATE [Concomitant]
     Dosage: UNK UKN, UNK
  8. LISINOPRIL [Concomitant]
     Dosage: UNK UKN, UNK
  9. OMEPRAZOLE [Concomitant]
     Dosage: UNK UKN, UNK
  10. CHLORPHENIRAMINE MALEATE [Concomitant]
     Dosage: UNK UKN, UNK

REACTIONS (1)
  - DRUG INEFFECTIVE [None]
